FAERS Safety Report 16059722 (Version 11)
Quarter: 2020Q1

REPORT INFORMATION
  Report Type: Report from Study
  Country: US (occurrence: US)
  Receive Date: 20190311
  Receipt Date: 20200205
  Transmission Date: 20200409
  Serious: Yes (Death, Hospitalization)
  Sender: FDA-Public Use
  Company Number: US-ACTELION-A-NJ2018-183593

PATIENT
  Age: 70 Year
  Sex: Female
  Weight: 101.59 kg

DRUGS (8)
  1. SILDENAFIL. [Concomitant]
     Active Substance: SILDENAFIL
  2. VELETRI [Suspect]
     Active Substance: EPOPROSTENOL
     Dosage: 2 NG/KG, PER MIN
     Route: 042
  3. XANAX [Suspect]
     Active Substance: ALPRAZOLAM
     Indication: PRODUCT USED FOR UNKNOWN INDICATION
     Route: 065
  4. ELIQUIS [Concomitant]
     Active Substance: APIXABAN
  5. VELETRI [Suspect]
     Active Substance: EPOPROSTENOL
     Dosage: 20 NG/KG, PER MIN
     Route: 042
  6. VELETRI [Suspect]
     Active Substance: EPOPROSTENOL
     Dosage: 12 NG/KG, PER MIN
     Route: 042
  7. VELETRI [Suspect]
     Active Substance: EPOPROSTENOL
     Indication: PULMONARY ARTERIAL HYPERTENSION
     Dosage: 20 NG/KG, PER MIN
     Route: 042
  8. VELETRI [Suspect]
     Active Substance: EPOPROSTENOL
     Dosage: 7 NG/KG, PER MIN
     Route: 042

REACTIONS (21)
  - Pericardial effusion [Unknown]
  - Scab [Unknown]
  - Dyspnoea exertional [Recovering/Resolving]
  - Right ventricular failure [Fatal]
  - Pulmonary oedema [Unknown]
  - Cardiac failure [Unknown]
  - Rash erythematous [Unknown]
  - Blood glucose fluctuation [Unknown]
  - Pain [Unknown]
  - Pain in jaw [Not Recovered/Not Resolved]
  - Headache [Unknown]
  - Insomnia [Unknown]
  - Inflammation [Unknown]
  - Pleural effusion [Unknown]
  - Condition aggravated [Unknown]
  - Scratch [Unknown]
  - Atrial fibrillation [Unknown]
  - Rash pruritic [Unknown]
  - Dyspnoea [Unknown]
  - Back pain [Unknown]
  - Pruritus [Unknown]

NARRATIVE: CASE EVENT DATE: 201903
